FAERS Safety Report 19589344 (Version 1)
Quarter: 2021Q3

REPORT INFORMATION
  Report Type: Spontaneous
  Country: US (occurrence: US)
  Receive Date: 20210721
  Receipt Date: 20210721
  Transmission Date: 20211014
  Serious: Yes (Hospitalization)
  Sender: FDA-Public Use
  Company Number: US-BAYER-2021-179723

PATIENT
  Age: 47 Year
  Sex: Female

DRUGS (1)
  1. GADAVIST [Suspect]
     Active Substance: GADOBUTROL
     Indication: MAGNETIC RESONANCE IMAGING BREAST
     Dosage: UNK, ONCE
     Dates: start: 20210226, end: 20210226

REACTIONS (6)
  - Anaphylactic shock [None]
  - Syncope [None]
  - Restlessness [None]
  - Dizziness [None]
  - Anxiety [None]
  - Asthenia [None]

NARRATIVE: CASE EVENT DATE: 20210226
